FAERS Safety Report 16709376 (Version 2)
Quarter: 2019Q4

REPORT INFORMATION
  Report Type: Spontaneous
  Country: PY (occurrence: PY)
  Receive Date: 20190816
  Receipt Date: 20191014
  Transmission Date: 20200122
  Serious: Yes (Hospitalization, Other)
  Sender: FDA-Public Use
  Company Number: PY-SA-2019SA214851

PATIENT
  Age: 5 Year
  Sex: Female
  Weight: 16 kg

DRUGS (2)
  1. MYOZYME [Suspect]
     Active Substance: ALGLUCOSIDASE ALFA
     Dosage: 20 MG/KG (320 MG)
     Route: 041
     Dates: start: 201606, end: 20190801
  2. MYOZYME [Suspect]
     Active Substance: ALGLUCOSIDASE ALFA
     Indication: GLYCOGEN STORAGE DISEASE TYPE II
     Dosage: 20 MG/KG (6VIALS PER INFUSION), QOW
     Route: 041
     Dates: start: 20170609

REACTIONS (4)
  - Pseudomonas infection [Recovered/Resolved]
  - Pyrexia [Recovered/Resolved]
  - Tracheostomy [Unknown]
  - Bilevel positive airway pressure [Not Recovered/Not Resolved]

NARRATIVE: CASE EVENT DATE: 2017
